FAERS Safety Report 5721904-3 (Version None)
Quarter: 2008Q2

REPORT INFORMATION
  Report Type: 
  Country: None (occurrence: None)
  Receive Date: 20080429
  Receipt Date: 20080421
  Transmission Date: 20081010
  Serious: Yes (Hospitalization, Other)
  Sender: FDA-Public Use
  Company Number: JP-PFIZER INC-2008001991

PATIENT
  Sex: Male
  Weight: 55 kg

DRUGS (4)
  1. AMLODIPINE [Suspect]
     Indication: HYPERTENSION
     Route: 048
     Dates: start: 20070526, end: 20080106
  2. FLUTIDE [Concomitant]
     Indication: ASTHMA
     Dosage: DAILY DOSE:200MCG-FREQ:DAILY
     Route: 048
  3. UNIPHYL [Concomitant]
     Indication: ASTHMA
     Dosage: DAILY DOSE:400MG-FREQ:DAILY
     Route: 048
  4. SPIROPENT [Concomitant]
     Indication: ASTHMA
     Dosage: DAILY DOSE:20MCG-FREQ:DAILY
     Route: 048

REACTIONS (3)
  - DIZZINESS POSTURAL [None]
  - FALL [None]
  - LOSS OF CONSCIOUSNESS [None]
